FAERS Safety Report 4421632-0 (Version None)
Quarter: 2004Q3

REPORT INFORMATION
  Report Type: 
  Country: None (occurrence: None)
  Receive Date: 20040804
  Receipt Date: 20040723
  Transmission Date: 20050211
  Serious: Yes (Hospitalization)
  Sender: FDA-Public Use
  Company Number: 2003119807

PATIENT
  Age: 91 Year
  Sex: Female
  Weight: 56.6996 kg

DRUGS (8)
  1. ROGAINE [Suspect]
     Indication: ALOPECIA
     Dosage: 1 ML TWICE DAILY TOPICAL
     Route: 061
     Dates: start: 19960101
  2. FUROSEMIDE [Concomitant]
  3. ESOMEPRAZOLE (ESOMEPRAZOLE) [Concomitant]
  4. CARVEDILOL [Concomitant]
  5. POTASSIUM CHLORIDE [Concomitant]
  6. VITAMINS NOS (VITAMINS NOS) [Concomitant]
  7. DOCUSATE SODIUM (DOCUSATE SODIUM) [Concomitant]
  8. DIGOXIN [Concomitant]

REACTIONS (4)
  - ALOPECIA [None]
  - HEART RATE INCREASED [None]
  - PULMONARY OEDEMA [None]
  - RESPIRATORY DISORDER [None]
